FAERS Safety Report 5735609-6 (Version None)
Quarter: 2008Q2

REPORT INFORMATION
  Report Type: 
  Country: None (occurrence: None)
  Receive Date: 20080508
  Receipt Date: 20080425
  Transmission Date: 20081010
  Serious: Yes (Life-Threatening)
  Sender: FDA-Public Use
  Company Number: 2008011692

PATIENT
  Sex: Male

DRUGS (1)
  1. ZYRTEC [Suspect]
     Dosage: ORAL
     Route: 048

REACTIONS (1)
  - LARYNGEAL OEDEMA [None]
